FAERS Safety Report 11336890 (Version 3)
Quarter: 2015Q4

REPORT INFORMATION
  Report Type: Spontaneous
  Country: US (occurrence: US)
  Receive Date: 20150804
  Receipt Date: 20151020
  Transmission Date: 20160304
  Serious: Yes (Other)
  Sender: FDA-Public Use
  Company Number: US-PFIZER INC-2015257327

PATIENT
  Age: 66 Year
  Sex: Female
  Weight: 58 kg

DRUGS (10)
  1. LYRICA [Suspect]
     Active Substance: PREGABALIN
     Indication: PAIN OF SKIN
     Dosage: 50 MG, 1X/DAY (50MG BEDTIME)
     Dates: start: 20150506
  2. ESTROGEN [Concomitant]
     Active Substance: ESTRONE\SUS SCROFA OVARY
     Dosage: UNK
     Dates: start: 2012
  3. PROGESTERONE. [Concomitant]
     Active Substance: PROGESTERONE
     Dosage: UNK
     Dates: start: 2012
  4. EPA DHA [Concomitant]
     Dosage: UNK
  5. MULTIVITAMINS [Concomitant]
     Active Substance: VITAMINS
     Dosage: UNK
     Dates: start: 1980
  6. LYRICA [Suspect]
     Active Substance: PREGABALIN
     Dosage: 50 MG, EVERY OTHER DAY
     Dates: start: 20150707, end: 20150720
  7. LEVOTHYROXINE. [Concomitant]
     Active Substance: LEVOTHYROXINE
     Dosage: UNK
     Dates: start: 1985
  8. TRYPTOPHAN [Concomitant]
     Active Substance: TRYPTOPHAN
     Dosage: UNK
  9. METHYLATED B VITAMINS [Concomitant]
     Dosage: UNK
  10. ALPHA LIPOIC ACID [Concomitant]
     Active Substance: .ALPHA.-LIPOIC ACID
     Dosage: UNK

REACTIONS (11)
  - Product use issue [Unknown]
  - Suicidal ideation [Recovering/Resolving]
  - Paraesthesia [Unknown]
  - Condition aggravated [Unknown]
  - Feeling abnormal [Unknown]
  - Pain of skin [Unknown]
  - Burning sensation [Unknown]
  - Confusional state [Unknown]
  - Thinking abnormal [Unknown]
  - Impaired driving ability [Unknown]
  - Fatigue [Unknown]

NARRATIVE: CASE EVENT DATE: 20150506
